FAERS Safety Report 5460947-4 (Version None)
Quarter: 2007Q3

REPORT INFORMATION
  Report Type: 
  Country: None (occurrence: None)
  Receive Date: 20070823
  Receipt Date: 20070605
  Transmission Date: 20080115
  Serious: No
  Sender: FDA-Public Use
  Company Number: SPV1-2007-03197

PATIENT
  Sex: Male

DRUGS (1)
  1. FOSRENOL [Suspect]
     Dosage: 1000 MG, ORAL
     Route: 048
     Dates: start: 20070604

REACTIONS (2)
  - COUGH [None]
  - DRUG INEFFECTIVE [None]
